FAERS Safety Report 4372021-9 (Version None)
Quarter: 2004Q2

REPORT INFORMATION
  Report Type: 
  Country: None (occurrence: None)
  Receive Date: 20040602
  Receipt Date: 20040402
  Transmission Date: 20050107
  Serious: Yes (Hospitalization, Other)
  Sender: FDA-Public Use
  Company Number: RB-602-2004

PATIENT
  Age: 35 Year
  Sex: Male

DRUGS (6)
  1. BUPRENORPHINE HCL [Suspect]
     Indication: DRUG DEPENDENCE
     Dosage: 16 MG
     Route: 048
     Dates: start: 20040301
  2. METHADONE HYDROCHLORIDE [Suspect]
     Indication: DRUG DEPENDENCE
     Dosage: 70 MG
     Route: 048
  3. AMISULPRIDE [Concomitant]
  4. LEVOMEPROMAZINE [Concomitant]
  5. LEVOMEPROMAZINE [Concomitant]
  6. DIAZEPAM [Concomitant]

REACTIONS (4)
  - ACUTE PSYCHOSIS [None]
  - AGGRESSION [None]
  - GAMMA-GLUTAMYLTRANSFERASE INCREASED [None]
  - HALLUCINATION [None]
